FAERS Safety Report 16170691 (Version 1)
Quarter: 2019Q2

REPORT INFORMATION
  Report Type: Spontaneous
  Country: DE (occurrence: DE)
  Receive Date: 20190408
  Receipt Date: 20190408
  Transmission Date: 20190711
  Serious: Yes (Other)
  Sender: FDA-Public Use
  Company Number: DE-MYLANLABS-2019M1031438

PATIENT

DRUGS (5)
  1. PROCARBAZINE [Suspect]
     Active Substance: PROCARBAZINE
     Indication: CENTRAL NERVOUS SYSTEM LYMPHOMA
     Dosage: ON DAYS 2-11
     Route: 048
  2. PROCARBAZINE [Suspect]
     Active Substance: PROCARBAZINE
     Dosage: 100 MG FOR 5 DAYS (6 CYCLES REPEATED ON DAY 29)UNK
     Route: 048
  3. MABTHERA [Suspect]
     Active Substance: RITUXIMAB
     Indication: CENTRAL NERVOUS SYSTEM LYMPHOMA
     Dosage: INFUSED IN 90 MIN DAY 6 (ONLY AT THE BEGINNING OF TREATMENT), DAYS 1, 15 AND 29
     Route: 042
  4. LOMUSTINE. [Suspect]
     Active Substance: LOMUSTINE
     Indication: CENTRAL NERVOUS SYSTEM LYMPHOMA
     Dosage: ON DAY 2
     Route: 048
  5. METHOTREXATE. [Suspect]
     Active Substance: METHOTREXATE
     Indication: CENTRAL NERVOUS SYSTEM LYMPHOMA
     Dosage: OVER 4 H ON DAYS 2, 16 AND 30
     Route: 042

REACTIONS (7)
  - Leukopenia [Unknown]
  - Thrombocytopenia [Unknown]
  - Infection [Unknown]
  - Renal impairment [Unknown]
  - Transaminases abnormal [Unknown]
  - Mucosal inflammation [Unknown]
  - Anaemia [Unknown]
